FAERS Safety Report 12510778 (Version 2)
Quarter: 2016Q3

REPORT INFORMATION
  Report Type: Spontaneous
  Country: GB (occurrence: GB)
  Receive Date: 20160629
  Receipt Date: 20160704
  Transmission Date: 20161109
  Serious: Yes (Other)
  Sender: FDA-Public Use
  Company Number: GB-ABBVIE-16P-167-1662348-00

PATIENT
  Age: 83 Year
  Sex: Female

DRUGS (2)
  1. CREON [Suspect]
     Active Substance: PANCRELIPASE AMYLASE\PANCRELIPASE LIPASE\PANCRELIPASE PROTEASE
     Indication: PANCREATIC INSUFFICIENCY
     Route: 065
  2. CREON [Suspect]
     Active Substance: PANCRELIPASE AMYLASE\PANCRELIPASE LIPASE\PANCRELIPASE PROTEASE
     Indication: PANCREATIC INSUFFICIENCY
     Dosage: 25000 - 50000 WITH FOOD
     Route: 048

REACTIONS (3)
  - Vomiting [Recovered/Resolved]
  - Drug intolerance [Recovered/Resolved with Sequelae]
  - Product taste abnormal [Recovered/Resolved with Sequelae]

NARRATIVE: CASE EVENT DATE: 201604
